FAERS Safety Report 17546412 (Version 1)
Quarter: 2020Q1

REPORT INFORMATION
  Report Type: Spontaneous
  Country: US (occurrence: US)
  Receive Date: 20200316
  Receipt Date: 20200316
  Transmission Date: 20200409
  Serious: No
  Sender: FDA-Public Use
  Company Number: None

PATIENT
  Age: 61 Year
  Sex: Female
  Weight: 52.16 kg

DRUGS (2)
  1. RINVOQ [Concomitant]
     Active Substance: UPADACITINIB
     Dates: start: 20200103, end: 20200211
  2. RINVOQ [Suspect]
     Active Substance: UPADACITINIB
     Indication: RHEUMATOID ARTHRITIS
     Route: 048
     Dates: start: 20200130, end: 20200211

REACTIONS (3)
  - Eye swelling [None]
  - Dizziness [None]
  - Visual impairment [None]

NARRATIVE: CASE EVENT DATE: 20200131
